FAERS Safety Report 26052110 (Version 1)
Quarter: 2025Q4

REPORT INFORMATION
  Report Type: Spontaneous
  Country: EU (occurrence: EU)
  Receive Date: 20251117
  Receipt Date: 20251117
  Transmission Date: 20260117
  Serious: Yes (Death)
  Sender: AMGEN
  Company Number: EU-AMGEN-NLDSP2025224472

PATIENT

DRUGS (1)
  1. BEVACIZUMAB [Suspect]
     Active Substance: BEVACIZUMAB
     Indication: Age-related macular degeneration
     Dosage: UNK
     Route: 065

REACTIONS (3)
  - Prostate cancer [Fatal]
  - Drug ineffective for unapproved indication [Unknown]
  - Off label use [Unknown]
